FAERS Safety Report 18585849 (Version 1)
Quarter: 2020Q4

REPORT INFORMATION
  Report Type: Spontaneous
  Country: FR (occurrence: FR)
  Receive Date: 20201207
  Receipt Date: 20201207
  Transmission Date: 20210114
  Serious: Yes (Other)
  Sender: FDA-Public Use
  Company Number: NVSC2020FR318766

PATIENT
  Age: 92 Year
  Sex: Male
  Weight: 73 kg

DRUGS (33)
  1. CEFTRIAXONE PANPHARMA [Suspect]
     Active Substance: CEFTRIAXONE
     Dosage: 1 G, QD
     Route: 042
     Dates: start: 20200927
  2. ROVAMYCINE [Suspect]
     Active Substance: SPIRAMYCIN
     Indication: SEPSIS
     Dosage: 1.5 IU, Q8H
     Route: 042
     Dates: start: 20200926
  3. XATRAL [Concomitant]
     Active Substance: ALFUZOSIN
     Indication: PRODUCT USED FOR UNKNOWN INDICATION
     Dosage: 10 MG, QD (LE SOIR)
     Route: 048
  4. ROVAMYCINE [Suspect]
     Active Substance: SPIRAMYCIN
     Dosage: 1.5 IU, Q8H
     Route: 042
     Dates: start: 20200927
  5. COUMADINE [Suspect]
     Active Substance: WARFARIN SODIUM
     Indication: ATRIAL FIBRILLATION
     Dosage: 850 MG, QD
     Route: 048
     Dates: start: 201812
  6. ELIQUIS [Suspect]
     Active Substance: APIXABAN
     Indication: ATRIAL FIBRILLATION
     Dosage: 5 MG, QD
     Route: 048
     Dates: start: 20201016
  7. FUROSEMIDE. [Concomitant]
     Active Substance: FUROSEMIDE
     Indication: HYPERTENSIVE HEART DISEASE
     Dosage: 500 MG, QD (LE MATIN)
     Route: 048
  8. CEFAZOLINE MYLAN [Suspect]
     Active Substance: CEFAZOLIN SODIUM
     Indication: SEPSIS
     Dosage: 1500 MG, QD (MATIN ET SOIR)
     Route: 042
     Dates: start: 20200928
  9. COUMADINE [Suspect]
     Active Substance: WARFARIN SODIUM
     Dosage: 850 MG, QD
     Route: 048
     Dates: start: 20201008
  10. LOXEN L P [Concomitant]
     Active Substance: NICARDIPINE HYDROCHLORIDE
     Indication: HYPERTENSION
     Dosage: 100 MG, QD (MATIN ET SOIR, GELULE A LIBERATION PROLONGEE)
     Route: 048
  11. EUPRESSYL [Concomitant]
     Active Substance: URAPIDIL
     Indication: HYPERTENSION
     Dosage: 30 MG, QD (LE MATIN, GELULE)
     Route: 048
  12. CALCIPARINE [Suspect]
     Active Substance: HEPARIN CALCIUM
     Indication: THROMBOSIS PROPHYLAXIS
     Dosage: 10000 IU, QD (5000 UI/0,2 ML)
     Route: 058
     Dates: start: 20201010
  13. CEFTRIAXONE PANPHARMA [Suspect]
     Active Substance: CEFTRIAXONE
     Indication: SEPSIS
     Dosage: 1 G, QD
     Route: 042
     Dates: start: 20200926
  14. CONTRAMAL [Concomitant]
     Active Substance: TRAMADOL HYDROCHLORIDE
     Indication: PAIN
     Dosage: 5 DF, PRN
     Route: 048
     Dates: start: 20201010
  15. RIFAMPICINE [Concomitant]
     Active Substance: RIFAMPIN
     Indication: ENDOCARDITIS
     Dosage: 900 MG, QD (3 GELULES DE 300 MG A 22H)
     Route: 048
     Dates: start: 20201008
  16. CALCIDOSE [Concomitant]
     Indication: CALCIUM DEFICIENCY
     Dosage: 1000 MG, QD (MATIN ET SOIR, 500, POUDRE POUR SUSPENSION BUVABLE EN SACHET)
     Route: 048
     Dates: start: 20201013
  17. GENTAMICINE PANPHARMA [Suspect]
     Active Substance: GENTAMICIN
     Indication: SEPSIS
     Dosage: 200 MG, Q24H
     Route: 042
     Dates: start: 20200927
  18. HYPERIUM [Concomitant]
     Active Substance: RILMENIDINE PHOSPHATE
     Dosage: 2 MG, QD (MATIN ET SOIR, COMPRIME)
     Route: 048
     Dates: start: 20201026
  19. VANCOMYCINE SANDOZ [Suspect]
     Active Substance: VANCOMYCIN
     Indication: SEPSIS
     Dosage: 1500 MG, QD (POUDRE POUR SOLUTION POUR PERFUSION)
     Route: 042
     Dates: start: 20200927
  20. VANCOMYCINE SANDOZ [Suspect]
     Active Substance: VANCOMYCIN
     Dosage: 1500 MG, QD (POUDRE POUR SOLUTION POUR PERFUSION)
     Route: 042
     Dates: start: 20200928
  21. CALCIPARINE [Suspect]
     Active Substance: HEPARIN CALCIUM
     Dosage: 10000 IU, QD (5000 UI/0,2 ML)
     Route: 058
     Dates: start: 20201016
  22. CEFAZOLINE MYLAN [Suspect]
     Active Substance: CEFAZOLIN SODIUM
     Dosage: 1500 MG, QD (MATIN ET SOIR)
     Route: 042
     Dates: start: 20201008
  23. ELIQUIS [Suspect]
     Active Substance: APIXABAN
     Dosage: 5 MG, QD
     Route: 048
     Dates: start: 20201018
  24. SERESTA [Concomitant]
     Active Substance: OXAZEPAM
     Dosage: 5 MG, PRN
     Route: 048
     Dates: start: 20201013
  25. HYPERIUM [Concomitant]
     Active Substance: RILMENIDINE PHOSPHATE
     Indication: HYPERTENSION
     Dosage: 2 MG, QD (MATIN ET SOIR, COMPRIME)
     Route: 048
  26. CHOLECALCIFEROL [Concomitant]
     Active Substance: CHOLECALCIFEROL
     Indication: VITAMIN SUPPLEMENTATION
     Dosage: UNK (NON RENSEIGNEE)
     Route: 048
  27. DIFFU K [Concomitant]
     Active Substance: POTASSIUM CHLORIDE
     Dosage: 1200 MG, QD (GELULE, MATIN ET SOIR)
     Route: 048
     Dates: start: 20201010
  28. PARACETAMOL [Concomitant]
     Active Substance: ACETAMINOPHEN
     Indication: PAIN
     Dosage: 3 G, QD (SI BESOIN)
     Route: 048
  29. GENTAMICINE PANPHARMA [Suspect]
     Active Substance: GENTAMICIN
     Dosage: 200 MG, Q24H
     Route: 042
     Dates: start: 20200928
  30. SERESTA [Concomitant]
     Active Substance: OXAZEPAM
     Indication: ANXIETY
     Dosage: 25 MG, QD (COMPRIME SECABLE, 1/2 LA NUIT, STRENGTH: 50 MG)
     Route: 048
     Dates: start: 20201009, end: 20201019
  31. MOVICOL [Concomitant]
     Active Substance: POLYETHYLENE GLYCOL 3350\POTASSIUM CHLORIDE\SODIUM BICARBONATE\SODIUM CHLORIDE
     Indication: CONSTIPATION
     Dosage: 2 DF, QD (1 SACHET MATIN ET MIDI)
     Route: 048
     Dates: start: 20201010
  32. DAPTOMYCIN. [Concomitant]
     Active Substance: DAPTOMYCIN
     Indication: ENDOCARDITIS
     Dosage: 850 MG, QD
     Route: 042
     Dates: start: 20201008
  33. DIFFU K [Concomitant]
     Active Substance: POTASSIUM CHLORIDE
     Indication: HYPOKALAEMIA
     Dosage: 1200 MG, QD (GELULE, MATIN ET SOIR)
     Route: 048

REACTIONS (1)
  - Vascular purpura [Recovered/Resolved]

NARRATIVE: CASE EVENT DATE: 20201017
